FAERS Safety Report 11514451 (Version 2)
Quarter: 2015Q3

REPORT INFORMATION
  Report Type: Report from Study
  Country: US (occurrence: US)
  Receive Date: 20150916
  Receipt Date: 20150924
  Transmission Date: 20151125
  Serious: Yes (Other)
  Sender: FDA-Public Use
  Company Number: US-GILEAD-2015-0172196

PATIENT
  Age: 56 Year
  Sex: Female

DRUGS (3)
  1. AMBRISENTAN [Suspect]
     Active Substance: AMBRISENTAN
     Indication: PULMONARY HYPERTENSION
     Dosage: 5 MG, QD
     Route: 065
     Dates: start: 20130827
  2. AMBRISENTAN [Suspect]
     Active Substance: AMBRISENTAN
     Indication: COR PULMONALE
  3. ADCIRCA [Concomitant]
     Active Substance: TADALAFIL

REACTIONS (7)
  - Choking [Unknown]
  - Malaise [Unknown]
  - Palpitations [Unknown]
  - Headache [Unknown]
  - Insomnia [Unknown]
  - Dyspnoea [Unknown]
  - Dizziness [Unknown]
